FAERS Safety Report 8210269-3 (Version None)
Quarter: 2012Q1

REPORT INFORMATION
  Report Type: 
  Country: None (occurrence: None)
  Receive Date: 20120314
  Receipt Date: 20120213
  Transmission Date: 20120608
  Serious: No
  Sender: FDA-Public Use
  Company Number: US-ASTRAZENECA-2011SE78431

PATIENT
  Age: 73 Year
  Sex: Male
  Weight: 81.6 kg

DRUGS (3)
  1. ASPIRIN [Concomitant]
  2. METOPROLOL SUCCINATE [Suspect]
     Indication: HYPERTENSION
     Route: 048
  3. LOTREL [Concomitant]
     Indication: HYPERTENSION

REACTIONS (3)
  - IMPAIRED DRIVING ABILITY [None]
  - MALAISE [None]
  - DIZZINESS POSTURAL [None]
